FAERS Safety Report 25786732 (Version 1)
Quarter: 2025Q3

REPORT INFORMATION
  Report Type: Spontaneous
  Country: US (occurrence: None)
  Receive Date: 20250909
  Receipt Date: 20250909
  Transmission Date: 20251021
  Serious: Yes (Hospitalization)
  Sender: FDA-CTU
  Company Number: None

PATIENT
  Age: 78 Year
  Sex: Female

DRUGS (1)
  1. KISUNLA [Suspect]
     Active Substance: DONANEMAB-AZBT
     Indication: Dementia Alzheimer^s type
     Dosage: OTHER FREQUENCY : EVERY 4 WEEKS;?
     Route: 041

REACTIONS (3)
  - Somnolence [None]
  - Pain in extremity [None]
  - Transient ischaemic attack [None]

NARRATIVE: CASE EVENT DATE: 20250905
